FAERS Safety Report 14539296 (Version 1)
Quarter: 2018Q1

REPORT INFORMATION
  Report Type: Spontaneous
  Country: US (occurrence: US)
  Receive Date: 20180215
  Receipt Date: 20180215
  Transmission Date: 20180509
  Serious: Yes (Life-Threatening)
  Sender: FDA-Public Use
  Company Number: None

PATIENT
  Age: 45 Year
  Sex: Male
  Weight: 75 kg

DRUGS (1)
  1. ZARXIO [Suspect]
     Active Substance: FILGRASTIM-SNDZ
     Indication: STEM CELL TRANSPLANT
     Route: 058
     Dates: start: 20180208, end: 20180212

REACTIONS (3)
  - White blood cell count abnormal [None]
  - Therapy change [None]
  - Splenic rupture [None]

NARRATIVE: CASE EVENT DATE: 20180213
